FAERS Safety Report 22258019 (Version 1)
Quarter: 2023Q2

REPORT INFORMATION
  Report Type: Spontaneous
  Country: HU (occurrence: HU)
  Receive Date: 20230427
  Receipt Date: 20230427
  Transmission Date: 20230722
  Serious: Yes (Hospitalization)
  Sender: FDA-Public Use
  Company Number: HU-STRIDES ARCOLAB LIMITED-2023SP005873

PATIENT
  Sex: Female

DRUGS (10)
  1. PREDNISOLONE [Suspect]
     Active Substance: PREDNISOLONE
     Indication: Prophylaxis against transplant rejection
     Dosage: UNK
     Route: 065
  2. TACROLIMUS [Suspect]
     Active Substance: TACROLIMUS
     Indication: Prophylaxis against transplant rejection
     Dosage: UNK
     Route: 065
  3. MONTELUKAST [Suspect]
     Active Substance: MONTELUKAST SODIUM
     Indication: Small airways disease
     Dosage: UNK
     Route: 065
  4. MYCOPHENOLIC ACID [Suspect]
     Active Substance: MYCOPHENOLIC ACID
     Indication: Prophylaxis against transplant rejection
     Dosage: UNK
     Route: 065
  5. MYCOPHENOLIC ACID [Suspect]
     Active Substance: MYCOPHENOLIC ACID
     Dosage: UNK ( DOSE REDUCED AND STOPPED DURING COVID-19 INFECTION)
     Route: 065
     Dates: end: 2020
  6. MYCOPHENOLIC ACID [Suspect]
     Active Substance: MYCOPHENOLIC ACID
     Dosage: UNK (RESTARTED)
     Route: 065
  7. METHYLPREDNISOLONE [Suspect]
     Active Substance: METHYLPREDNISOLONE
     Indication: COVID-19 pneumonia
     Dosage: UNK
     Route: 065
  8. METHYLPREDNISOLONE [Suspect]
     Active Substance: METHYLPREDNISOLONE
     Indication: Thyroiditis subacute
     Dosage: UNK (HIGH DOSE)
     Route: 065
  9. METHYLPREDNISOLONE [Suspect]
     Active Substance: METHYLPREDNISOLONE
     Indication: Complications of transplanted lung
  10. ALEMTUZUMAB [Suspect]
     Active Substance: ALEMTUZUMAB
     Indication: Lung transplant
     Dosage: UNK (INDUCTION)
     Route: 065

REACTIONS (6)
  - Atrial fibrillation [Unknown]
  - COVID-19 pneumonia [Recovered/Resolved]
  - Bronchiolitis [Unknown]
  - Transplant rejection [Unknown]
  - Complications of transplanted lung [Unknown]
  - Lymphopenia [Unknown]

NARRATIVE: CASE EVENT DATE: 20201101
